FAERS Safety Report 7083570-7 (Version None)
Quarter: 2010Q4

REPORT INFORMATION
  Report Type: 
  Country: None (occurrence: None)
  Receive Date: 20101104
  Receipt Date: 20101021
  Transmission Date: 20110411
  Serious: No
  Sender: FDA-Public Use
  Company Number: US-BAYER-201038065NA

PATIENT
  Age: 64 Year
  Sex: Male
  Weight: 91 kg

DRUGS (6)
  1. MAGNEVIST [Suspect]
     Indication: NUCLEAR MAGNETIC RESONANCE IMAGING
     Dosage: TOTAL DAILY DOSE: 20 ML  UNIT DOSE: 20 ML
     Route: 042
     Dates: start: 20101019, end: 20101019
  2. PREDNISONE [Concomitant]
     Indication: PREMEDICATION
     Dosage: AS USED: 50 MG
     Route: 048
     Dates: start: 20101018, end: 20101018
  3. PREDNISONE [Concomitant]
     Dosage: AS USED: 50 MG
     Route: 048
     Dates: start: 20101019, end: 20101019
  4. PREDNISONE [Concomitant]
     Dosage: AS USED: 50 MG
     Route: 048
     Dates: start: 20101019
  5. PREDNISONE [Concomitant]
     Dosage: AS USED: 50 MG
     Route: 048
     Dates: start: 20101019
  6. BENADRYL [Concomitant]
     Indication: PREMEDICATION
     Dosage: AS USED: 50 MG
     Route: 048
     Dates: start: 20101019, end: 20101019

REACTIONS (2)
  - CHEST DISCOMFORT [None]
  - THROAT TIGHTNESS [None]
